FAERS Safety Report 15791607 (Version 1)
Quarter: 2019Q1

REPORT INFORMATION
  Report Type: Report from Study
  Country: US (occurrence: US)
  Receive Date: 20190105
  Receipt Date: 20190105
  Transmission Date: 20190417
  Serious: Yes (Hospitalization)
  Sender: FDA-Public Use
  Company Number: US-UNITED THERAPEUTICS-UNT-2018-021603

PATIENT
  Age: 67 Year
  Sex: Male
  Weight: 52.88 kg

DRUGS (4)
  1. UT-15C SR [Suspect]
     Active Substance: TREPROSTINIL DIOLAMINE
     Dosage: 2.5 MG
     Route: 048
  2. UT-15C SR [Suspect]
     Active Substance: TREPROSTINIL DIOLAMINE
     Indication: PULMONARY ARTERIAL HYPERTENSION
     Dosage: 3.5 MG, TID
     Route: 048
     Dates: start: 20171114, end: 20181226
  3. LETAIRIS [Concomitant]
     Active Substance: AMBRISENTAN
     Indication: PRODUCT USED FOR UNKNOWN INDICATION
     Dosage: UNK
     Route: 065
  4. UT-15C SR [Suspect]
     Active Substance: TREPROSTINIL DIOLAMINE
     Dosage: 1 MG

REACTIONS (4)
  - Muscle spasms [Unknown]
  - Pulmonary arterial hypertension [Unknown]
  - Nausea [Unknown]
  - Headache [Unknown]

NARRATIVE: CASE EVENT DATE: 20181226
